FAERS Safety Report 10519526 (Version 5)
Quarter: 2015Q3

REPORT INFORMATION
  Report Type: Spontaneous
  Country: US (occurrence: US)
  Receive Date: 20141015
  Receipt Date: 20150729
  Transmission Date: 20151125
  Serious: Yes (Hospitalization, Other)
  Sender: FDA-Public Use
  Company Number: US-PFIZER INC-2014281605

PATIENT
  Age: 74 Year
  Sex: Female
  Weight: 93 kg

DRUGS (2)
  1. LYRICA [Suspect]
     Active Substance: PREGABALIN
     Indication: SCIATICA
     Dosage: 50 MG, 2X/DAY
     Route: 048
     Dates: start: 201409
  2. LYRICA [Suspect]
     Active Substance: PREGABALIN
     Indication: NEUROPATHY PERIPHERAL
     Dosage: 50 MG, 3X/DAY
     Route: 048
     Dates: start: 201408

REACTIONS (4)
  - Ovarian cancer stage IV [Not Recovered/Not Resolved]
  - Metastases to stomach [Not Recovered/Not Resolved]
  - Metastases to lung [Not Recovered/Not Resolved]
  - Recurrent cancer [Not Recovered/Not Resolved]

NARRATIVE: CASE EVENT DATE: 201410
